FAERS Safety Report 18453377 (Version 1)
Quarter: 2020Q4

REPORT INFORMATION
  Report Type: Spontaneous
  Country: US (occurrence: US)
  Receive Date: 20201102
  Receipt Date: 20201102
  Transmission Date: 20210114
  Serious: No
  Sender: FDA-Public Use
  Company Number: US-AMGEN-USASP2020174205

PATIENT
  Sex: Female
  Weight: 63 kg

DRUGS (14)
  1. NPLATE [Suspect]
     Active Substance: ROMIPLOSTIM
     Dosage: 125 MICROGRAM
     Route: 065
  2. NPLATE [Suspect]
     Active Substance: ROMIPLOSTIM
     Dosage: 250 MICROGRAM
     Route: 065
  3. LOSARTAN. [Concomitant]
     Active Substance: LOSARTAN
     Dosage: 100 MILLIGRAM, QD
  4. TRIAMCINOLONE [Concomitant]
     Active Substance: TRIAMCINOLONE
  5. NPLATE [Suspect]
     Active Substance: ROMIPLOSTIM
     Dosage: 310 MICROGRAM
     Route: 065
  6. NPLATE [Suspect]
     Active Substance: ROMIPLOSTIM
     Dosage: 375 MICROGRAM
     Route: 065
  7. NPLATE [Suspect]
     Active Substance: ROMIPLOSTIM
     Indication: IMMUNE THROMBOCYTOPENIA
     Dosage: 60 MICROGRAM
     Route: 065
     Dates: start: 20200427
  8. NPLATE [Suspect]
     Active Substance: ROMIPLOSTIM
     Dosage: 620 MICROGRAM, QWK
     Route: 065
     Dates: start: 20200714
  9. ATORVASTATIN [Concomitant]
     Active Substance: ATORVASTATIN
     Dosage: 10 MILLIGRAM, QD
  10. NPLATE [Suspect]
     Active Substance: ROMIPLOSTIM
     Dosage: 435 MICROGRAM
     Route: 065
  11. NPLATE [Suspect]
     Active Substance: ROMIPLOSTIM
     Dosage: 185 MICROGRAM
     Route: 065
  12. NPLATE [Suspect]
     Active Substance: ROMIPLOSTIM
     Dosage: 500 MICROGRAM
     Route: 065
  13. NPLATE [Suspect]
     Active Substance: ROMIPLOSTIM
     Dosage: 560 MICROGRAM
     Route: 065
  14. NPLATE [Suspect]
     Active Substance: ROMIPLOSTIM
     Dosage: 620 MICROGRAM, QWK
     Route: 065
     Dates: start: 20200722

REACTIONS (1)
  - Therapeutic product effect incomplete [Unknown]
